FAERS Safety Report 7776375-2 (Version None)
Quarter: 2011Q3

REPORT INFORMATION
  Report Type: 
  Country: None (occurrence: None)
  Receive Date: 20110926
  Receipt Date: 20110916
  Transmission Date: 20111222
  Serious: Yes (Hospitalization)
  Sender: FDA-Public Use
  Company Number: US-JNJFOC-20110907708

PATIENT
  Sex: Male
  Weight: 79.83 kg

DRUGS (3)
  1. BLOOD PRESSURE MEDICATION NOS [Concomitant]
     Indication: BLOOD PRESSURE
     Route: 048
  2. ASPIRIN [Concomitant]
     Route: 048
  3. DURAGESIC-100 [Suspect]
     Indication: ABDOMINAL PAIN UPPER
     Route: 062
     Dates: start: 20040101

REACTIONS (18)
  - MACULAR DEGENERATION [None]
  - HYPERHIDROSIS [None]
  - WITHDRAWAL SYNDROME [None]
  - THERAPEUTIC RESPONSE DELAYED [None]
  - HOT FLUSH [None]
  - NERVOUSNESS [None]
  - WEIGHT INCREASED [None]
  - HEART RATE DECREASED [None]
  - DRUG EFFECT DECREASED [None]
  - PAIN IN EXTREMITY [None]
  - AGITATION [None]
  - PARAESTHESIA [None]
  - HOSPITALISATION [None]
  - DRUG ADMINISTRATION ERROR [None]
  - RESTLESSNESS [None]
  - DRY MOUTH [None]
  - MYOCARDIAL INFARCTION [None]
  - MOOD SWINGS [None]
